FAERS Safety Report 12931969 (Version 3)
Quarter: 2016Q4

REPORT INFORMATION
  Report Type: Report from Study
  Country: AT (occurrence: AT)
  Receive Date: 20161111
  Receipt Date: 20161213
  Transmission Date: 20170207
  Serious: Yes (Hospitalization)
  Sender: FDA-Public Use
  Company Number: AT-ROCHE-1852322

PATIENT
  Age: 84 Year
  Sex: Female
  Weight: 59.4 kg

DRUGS (19)
  1. PREDNISOLUT [Concomitant]
     Active Substance: PREDNISOLONE
     Indication: PREMEDICATION
     Route: 042
     Dates: start: 20160419, end: 20160920
  2. MEXALEN [Concomitant]
     Active Substance: ACETAMINOPHEN
     Indication: PREMEDICATION
     Route: 048
     Dates: start: 20160419, end: 20160920
  3. DIBONDRIN [Concomitant]
     Active Substance: DIPHENHYDRAMINE HYDROCHLORIDE
     Indication: PREMEDICATION
     Dosage: 2 AMPULES
     Route: 042
     Dates: start: 20160419, end: 20160920
  4. PANTOPRAZOL [Concomitant]
     Active Substance: PANTOPRAZOLE SODIUM
     Indication: GASTRIC ULCER
     Route: 048
     Dates: start: 20160514
  5. SPASMOLYT [Concomitant]
     Indication: URGE INCONTINENCE
     Route: 048
     Dates: start: 2015
  6. DAFLON [Concomitant]
     Active Substance: DIOSMIN\HESPERIDIN
     Indication: VARICOSE VEIN
     Route: 048
     Dates: start: 2010
  7. OBINUTUZUMAB [Suspect]
     Active Substance: OBINUTUZUMAB
     Indication: CHRONIC LYMPHOCYTIC LEUKAEMIA
     Dosage: LAST DOSE PRIOR TO SAE: 1000 MG ON 20/SEP/2016 AT 14:40 ?FRQUENCY AS PER PROTOCOL : 100 MG OR 1000 M
     Route: 042
     Dates: start: 20160419
  8. REPARIL (AUSTRIA) [Concomitant]
     Indication: SPINAL PAIN
     Route: 048
     Dates: start: 2015
  9. ALLOPURINOL. [Concomitant]
     Active Substance: ALLOPURINOL
     Route: 048
     Dates: start: 20161108, end: 20161110
  10. ALLOPURINOL. [Concomitant]
     Active Substance: ALLOPURINOL
     Indication: PROPHYLAXIS
     Route: 048
     Dates: start: 20160416, end: 20161102
  11. DIBONDRIN [Concomitant]
     Active Substance: DIPHENHYDRAMINE HYDROCHLORIDE
     Indication: PROPHYLAXIS
  12. VALACICLOVIR [Concomitant]
     Active Substance: VALACYCLOVIR HYDROCHLORIDE
     Indication: INFECTION
     Route: 048
     Dates: start: 20160419, end: 20161111
  13. MEXALEN [Concomitant]
     Active Substance: ACETAMINOPHEN
     Indication: NASOPHARYNGITIS
  14. VOLTAREN [Concomitant]
     Active Substance: DICLOFENAC SODIUM
     Indication: PAIN
     Route: 048
     Dates: start: 2009
  15. PREDNISOLUT [Concomitant]
     Active Substance: PREDNISOLONE
     Indication: PROPHYLAXIS
  16. VENETOCLAX [Suspect]
     Active Substance: VENETOCLAX
     Indication: CHRONIC LYMPHOCYTIC LEUKAEMIA
     Dosage: MOST RECENT DOSE PRIOR TO SAE WAS 400 MG ON 19/OCT/2016 (START TIME UNKNOWN)?FREQUENCY AS PER PROTOC
     Route: 048
     Dates: start: 20160524
  17. VERTIROSAN (AUSTRIA) [Concomitant]
     Indication: VERTIGO
     Route: 048
     Dates: start: 2015
  18. MEXALEN [Concomitant]
     Active Substance: ACETAMINOPHEN
     Indication: PROPHYLAXIS
     Route: 048
     Dates: start: 20161005, end: 20161010
  19. LIDAPRIM FORTE [Concomitant]
     Indication: INFECTION
     Route: 048
     Dates: start: 20160419

REACTIONS (1)
  - Decreased appetite [Recovered/Resolved]

NARRATIVE: CASE EVENT DATE: 20161020
